FAERS Safety Report 15299886 (Version 1)
Quarter: 2018Q3

REPORT INFORMATION
  Report Type: Report from Study
  Country: BR (occurrence: BR)
  Receive Date: 20180821
  Receipt Date: 20180821
  Transmission Date: 20181010
  Serious: Yes (Other)
  Sender: FDA-Public Use
  Company Number: BR-UCBSA-2017050098

PATIENT
  Age: 1 Year
  Sex: Female
  Weight: 11 kg

DRUGS (5)
  1. LEVETIRACETAM. [Suspect]
     Active Substance: LEVETIRACETAM
     Dosage: 3.5 ML, 2X/DAY (BID)
     Route: 048
     Dates: start: 2017, end: 201711
  2. DEPAKENE [Concomitant]
     Active Substance: VALPROIC ACID
     Dosage: REDUCED DOSE
  3. DEPAKENE [Concomitant]
     Active Substance: VALPROIC ACID
     Dosage: DOSE INCREASED (RETURNED TO THE SAME DOSAGE)
  4. DEPAKENE [Concomitant]
     Active Substance: VALPROIC ACID
     Indication: PRODUCT USED FOR UNKNOWN INDICATION
     Dosage: UNK
  5. LEVETIRACETAM. [Suspect]
     Active Substance: LEVETIRACETAM
     Indication: EPILEPSY
     Dosage: 2.5 ML, 2X/DAY (BID)
     Route: 048
     Dates: start: 201708, end: 2017

REACTIONS (5)
  - Muscle spasms [Recovered/Resolved]
  - Pyrexia [Recovered/Resolved]
  - Agitation [Recovered/Resolved]
  - Seizure [Recovered/Resolved]
  - Viral infection [Recovered/Resolved]

NARRATIVE: CASE EVENT DATE: 2017
